FAERS Safety Report 22657879 (Version 1)
Quarter: 2023Q2

REPORT INFORMATION
  Report Type: Spontaneous
  Country: GB (occurrence: GB)
  Receive Date: 20230630
  Receipt Date: 20230630
  Transmission Date: 20230721
  Serious: Yes (Hospitalization, Other)
  Sender: FDA-Public Use
  Company Number: GB-MHRA-MED-202306181807500430-JZPHM

PATIENT
  Age: 21 Year
  Sex: Female

DRUGS (1)
  1. CIPROFLOXACIN [Suspect]
     Active Substance: CIPROFLOXACIN
     Indication: Blood urine
     Dosage: UNK
     Route: 065
     Dates: start: 20230614

REACTIONS (2)
  - Peripheral swelling [Not Recovered/Not Resolved]
  - Urinary bladder haemorrhage [Not Recovered/Not Resolved]

NARRATIVE: CASE EVENT DATE: 20230614
